FAERS Safety Report 4384994-9 (Version None)
Quarter: 2004Q2

REPORT INFORMATION
  Report Type: 
  Country: None (occurrence: None)
  Receive Date: 20040623
  Receipt Date: 20040623
  Transmission Date: 20050107
  Serious: Yes (Hospitalization)
  Sender: FDA-Public Use
  Company Number: None

PATIENT
  Age: 77 Year
  Sex: Female
  Weight: 54.7 kg

DRUGS (1)
  1. HEPARIN [Suspect]
     Indication: DIALYSIS
     Dosage: 5000 UNITS DWELL ONLY IN CATHETER
     Dates: start: 20040522

REACTIONS (2)
  - ANTIBODY TEST POSITIVE [None]
  - PLATELET COUNT DECREASED [None]
